FAERS Safety Report 9373126 (Version 1)
Quarter: 2013Q2

REPORT INFORMATION
  Report Type: Spontaneous
  Country: FR (occurrence: FR)
  Receive Date: 20130627
  Receipt Date: 20130627
  Transmission Date: 20140414
  Serious: Yes (Hospitalization)
  Sender: FDA-Public Use
  Company Number: FR-TEVA-415414ISR

PATIENT
  Sex: Female

DRUGS (4)
  1. FUROSEMIDE TEVA 40 MG [Suspect]
     Dosage: 80 MILLIGRAM DAILY;
     Route: 048
  2. ATARAX [Concomitant]
  3. XANAX [Concomitant]
  4. NOCTAMIDE [Concomitant]

REACTIONS (5)
  - Arrhythmia [Unknown]
  - Fatigue [Unknown]
  - Micturition frequency decreased [Unknown]
  - Conversion disorder [Unknown]
  - Heart rate decreased [Unknown]
